FAERS Safety Report 4655871-0 (Version None)
Quarter: 2005Q2

REPORT INFORMATION
  Report Type: 
  Country: None (occurrence: None)
  Receive Date: 20050505
  Receipt Date: 20050505
  Transmission Date: 20051028
  Serious: No
  Sender: FDA-Public Use
  Company Number: None

PATIENT
  Sex: Female

DRUGS (2)
  1. DURAGESIC PATCH 25 MCG ^GENERIC^ [Suspect]
     Indication: ARTHRITIS
     Dosage: ONE EVERY 3 DAYS
     Dates: start: 20050420
  2. DURAGESIC PATCH 25 MCG ^GENERIC^ [Suspect]
     Indication: CHEST WALL PAIN
     Dosage: ONE EVERY 3 DAYS
     Dates: start: 20050420

REACTIONS (2)
  - DRUG INEFFECTIVE [None]
  - PHARMACEUTICAL PRODUCT COMPLAINT [None]
